FAERS Safety Report 11127672 (Version 1)
Quarter: 2015Q2

REPORT INFORMATION
  Report Type: Spontaneous
  Country: US (occurrence: US)
  Receive Date: 20150521
  Receipt Date: 20150521
  Transmission Date: 20150821
  Serious: No
  Sender: FDA-Public Use
  Company Number: US-MYLANLABS-2014M1006536

PATIENT
  Sex: Female

DRUGS (1)
  1. GLIPIZIDE/METFORMIN HYDROCHLORIDE [Suspect]
     Active Substance: GLIPIZIDE\METFORMIN HYDROCHLORIDE
     Dosage: UNK

REACTIONS (1)
  - Weight increased [Not Recovered/Not Resolved]
